FAERS Safety Report 4958289-6 (Version None)
Quarter: 2006Q1

REPORT INFORMATION
  Report Type: 
  Country: None (occurrence: None)
  Receive Date: 20060330
  Receipt Date: 20060327
  Transmission Date: 20060701
  Serious: Yes (Other)
  Sender: FDA-Public Use
  Company Number: US-GLAXOSMITHKLINE-A0599261A

PATIENT
  Sex: Male

DRUGS (1)
  1. TUMS ASSORTED FRUIT [Suspect]
     Indication: DRUG USE FOR UNKNOWN INDICATION

REACTIONS (5)
  - ABDOMINAL DISCOMFORT [None]
  - ANAEMIA [None]
  - FEELING ABNORMAL [None]
  - INSOMNIA [None]
  - WEIGHT DECREASED [None]
